FAERS Safety Report 5169273-4 (Version None)
Quarter: 2006Q4

REPORT INFORMATION
  Report Type: 
  Country: None (occurrence: None)
  Receive Date: 20061211
  Receipt Date: 20061202
  Transmission Date: 20070319
  Serious: Yes (Hospitalization)
  Sender: FDA-Public Use
  Company Number: US-AMGEN-US202160

PATIENT
  Sex: Male

DRUGS (1)
  1. SENSIPAR [Suspect]
     Indication: HYPERPARATHYROIDISM SECONDARY
     Route: 065
     Dates: start: 20040101, end: 20061130

REACTIONS (5)
  - ARRHYTHMIA [None]
  - BLOOD CALCIUM DECREASED [None]
  - CALCIUM IONISED DECREASED [None]
  - CONVULSION [None]
  - HYPOCALCAEMIA [None]
